FAERS Safety Report 8474018-6 (Version None)
Quarter: 2012Q2

REPORT INFORMATION
  Report Type: 
  Country: None (occurrence: None)
  Receive Date: 20120628
  Receipt Date: 20120410
  Transmission Date: 20120825
  Serious: Yes (Death)
  Sender: FDA-Public Use
  Company Number: US-MYLANLABS-2012S1007104

PATIENT
  Age: 71 Year
  Sex: Male
  Weight: 53.07 kg

DRUGS (10)
  1. IPRATROPIUM BROMIDE [Concomitant]
  2. TAMIFLU [Concomitant]
     Dates: start: 20120317
  3. COREG [Concomitant]
  4. ALBUTEROL [Concomitant]
  5. WELLBUTRIN [Concomitant]
  6. AUGMENTIN '125' [Concomitant]
     Route: 042
     Dates: start: 20120320
  7. CLOZAPINE [Suspect]
     Route: 048
     Dates: end: 20120321
  8. ZOSYN [Concomitant]
     Route: 042
     Dates: start: 20120320
  9. INSULIN [Concomitant]
  10. ADVAIR DISKUS 100/50 [Concomitant]

REACTIONS (2)
  - ARRHYTHMIA [None]
  - INFLUENZA [None]
